FAERS Safety Report 12580722 (Version 1)
Quarter: 2016Q3

REPORT INFORMATION
  Report Type: Report from Study
  Country: NL (occurrence: NL)
  Receive Date: 20160721
  Receipt Date: 20160721
  Transmission Date: 20161109
  Serious: Yes (Hospitalization)
  Sender: FDA-Public Use
  Company Number: NL-INCYTE CORPORATION-2016IN004299

PATIENT
  Age: 64 Year
  Sex: Female

DRUGS (1)
  1. JAKAFI [Suspect]
     Active Substance: RUXOLITINIB
     Indication: MYELOFIBROSIS
     Dosage: UNKNOWN
     Route: 065

REACTIONS (2)
  - Pyrexia [Not Recovered/Not Resolved]
  - Acute myeloid leukaemia [Not Recovered/Not Resolved]

NARRATIVE: CASE EVENT DATE: 20160626
